FAERS Safety Report 14685414 (Version 1)
Quarter: 2018Q1

REPORT INFORMATION
  Report Type: Report from Study
  Country: BR (occurrence: BR)
  Receive Date: 20180327
  Receipt Date: 20180327
  Transmission Date: 20180509
  Serious: Yes (Death, Hospitalization, Other)
  Sender: FDA-Public Use
  Company Number: BR-ELI_LILLY_AND_COMPANY-BR201802008496

PATIENT
  Age: 71 Year
  Sex: Female

DRUGS (1)
  1. TERIPARATIDE [Suspect]
     Active Substance: TERIPARATIDE
     Indication: OSTEOPOROSIS
     Dosage: UNK UNK, DAILY
     Route: 058
     Dates: start: 201708, end: 201710

REACTIONS (9)
  - Malnutrition [Fatal]
  - Dysphagia [Recovered/Resolved]
  - Deficiency anaemia [Fatal]
  - Dyspnoea [Unknown]
  - Dementia Alzheimer^s type [Fatal]
  - Asthenia [Recovered/Resolved]
  - Hypotension [Unknown]
  - Hyponatraemia [Fatal]
  - Respiratory distress [Recovered/Resolved]

NARRATIVE: CASE EVENT DATE: 201708
